FAERS Safety Report 5616381-7 (Version None)
Quarter: 2008Q1

REPORT INFORMATION
  Report Type: 
  Country: None (occurrence: None)
  Receive Date: 20080204
  Receipt Date: 20080122
  Transmission Date: 20080703
  Serious: No
  Sender: FDA-Public Use
  Company Number: US022328

PATIENT
  Sex: Male

DRUGS (3)
  1. FENTORA [Suspect]
     Indication: GUN SHOT WOUND
     Dosage: 800 UG Q4HR BUCCAL
     Route: 002
     Dates: start: 20061207
  2. DURAGESIC-100 [Concomitant]
  3. HYDROMORPHONE HCL [Concomitant]

REACTIONS (1)
  - DRUG PRESCRIBING ERROR [None]
